FAERS Safety Report 5207551-0 (Version None)
Quarter: 2006Q4

REPORT INFORMATION
  Report Type: 
  Country: None (occurrence: None)
  Receive Date: 20061030
  Receipt Date: 20060725
  Transmission Date: 20070319
  Serious: No
  Sender: FDA-Public Use
  Company Number: 255482

PATIENT
  Age: 78 Year
  Sex: Female
  Weight: 71.7 kg

DRUGS (4)
  1. LEVEMIR [Suspect]
     Indication: DIABETES MELLITUS
     Dosage: IU,QD, SUBCUTANEOUS
     Route: 058
     Dates: start: 20060608, end: 20060614
  2. AMARYL [Concomitant]
  3. TOPROL-XL [Concomitant]
  4. DIOVAN /01319601/(VALSARTAN) [Concomitant]

REACTIONS (1)
  - RASH [None]
